FAERS Safety Report 23875087 (Version 1)
Quarter: 2024Q2

REPORT INFORMATION
  Report Type: Spontaneous
  Country: US (occurrence: None)
  Receive Date: 20240520
  Receipt Date: 20240520
  Transmission Date: 20240716
  Serious: Yes (Hospitalization)
  Sender: FDA-Public Use
  Company Number: None

PATIENT
  Age: 69 Year
  Sex: Female

DRUGS (1)
  1. IBRANCE [Suspect]
     Active Substance: PALBOCICLIB
     Indication: Breast cancer female
     Dosage: FREQUENCY : AS DIRECTED;?
     Route: 048

REACTIONS (9)
  - Vulvovaginal mycotic infection [None]
  - Fall [None]
  - Shoulder fracture [None]
  - Hip fracture [None]
  - Pneumonia [None]
  - Nausea [None]
  - Diarrhoea [None]
  - Fatigue [None]
  - Decreased appetite [None]
